FAERS Safety Report 6937321-4 (Version None)
Quarter: 2010Q3

REPORT INFORMATION
  Report Type: 
  Country: None (occurrence: None)
  Receive Date: 20100823
  Receipt Date: 20100811
  Transmission Date: 20110219
  Serious: Yes (Hospitalization)
  Sender: FDA-Public Use
  Company Number: GB-WATSON-2010-11203

PATIENT
  Sex: Male

DRUGS (2)
  1. CIPROFLOXACIN HCL [Suspect]
     Indication: GASTROENTERITIS SALMONELLA
     Dosage: UNK
     Route: 042
  2. CIPROFLOXACIN HCL [Suspect]
     Dosage: UNK
     Route: 048

REACTIONS (2)
  - COLECTOMY [None]
  - SPLENECTOMY [None]
